FAERS Safety Report 12293423 (Version 2)
Quarter: 2024Q2

REPORT INFORMATION
  Report Type: Spontaneous
  Country: CN (occurrence: CN)
  Receive Date: 20160421
  Receipt Date: 20240426
  Transmission Date: 20240715
  Serious: Yes (Other)
  Sender: FDA-Public Use
  Company Number: CN-MLMSERVICE-20160411-0237948-1

PATIENT
  Sex: Female

DRUGS (23)
  1. DEXAMETHASONE [Suspect]
     Active Substance: DEXAMETHASONE
     Indication: Central nervous system leukaemia
     Dosage: 2 ML OF SALINE
     Route: 065
     Dates: start: 2011
  2. DEXAMETHASONE [Suspect]
     Active Substance: DEXAMETHASONE
     Indication: Prophylaxis
  3. PREDNISONE [Suspect]
     Active Substance: PREDNISONE
     Indication: Non-Hodgkin^s lymphoma stage III
     Dosage: 100 MG PO QD D1-5 Q21D
     Route: 048
     Dates: start: 2011, end: 2011
  4. PREDNISONE [Suspect]
     Active Substance: PREDNISONE
     Indication: B-cell lymphoma stage II
     Dosage: 60MG PO QD D1-14; Q21D60MG PO QD
     Route: 048
     Dates: start: 2011, end: 2011
  5. PREDNISONE [Suspect]
     Active Substance: PREDNISONE
     Indication: Lymphocytic leukaemia
  6. METHOTREXATE [Suspect]
     Active Substance: METHOTREXATE
     Indication: Product used for unknown indication
     Route: 037
     Dates: start: 2011
  7. CYCLOPHOSPHAMIDE [Suspect]
     Active Substance: CYCLOPHOSPHAMIDE
     Indication: Non-Hodgkin^s lymphoma stage III
     Dosage: DAY (D)1
     Route: 042
     Dates: start: 2011, end: 2011
  8. CYCLOPHOSPHAMIDE [Suspect]
     Active Substance: CYCLOPHOSPHAMIDE
     Indication: Diffuse large B-cell lymphoma stage II
     Dosage: D1
     Route: 042
     Dates: start: 2011, end: 2011
  9. CYCLOPHOSPHAMIDE [Suspect]
     Active Substance: CYCLOPHOSPHAMIDE
     Indication: Lymphocytic leukaemia
     Route: 042
     Dates: start: 2011, end: 2011
  10. CYCLOPHOSPHAMIDE [Suspect]
     Active Substance: CYCLOPHOSPHAMIDE
     Dosage: ADJUVANT EC
     Route: 065
     Dates: start: 2011
  11. VINCRISTINE [Suspect]
     Active Substance: VINCRISTINE
     Indication: Non-Hodgkin^s lymphoma stage III
     Dosage: D1
     Route: 042
     Dates: start: 2011, end: 2011
  12. VINCRISTINE [Suspect]
     Active Substance: VINCRISTINE
     Indication: B-cell lymphoma stage II
  13. VINCRISTINE [Suspect]
     Active Substance: VINCRISTINE
     Indication: Lymphocytic leukaemia
  14. PIRARUBICIN [Suspect]
     Active Substance: PIRARUBICIN
     Indication: Diffuse large B-cell lymphoma stage II
     Dosage: D1-3
     Route: 042
     Dates: start: 2011, end: 2011
  15. PIRARUBICIN [Suspect]
     Active Substance: PIRARUBICIN
     Indication: Lymphocytic leukaemia
     Route: 042
     Dates: start: 2011
  16. CYTARABINE [Suspect]
     Active Substance: CYTARABINE
     Indication: Diffuse large B-cell lymphoma stage II
     Route: 042
     Dates: start: 2011
  17. CYTARABINE [Suspect]
     Active Substance: CYTARABINE
     Indication: Lymphocytic leukaemia
  18. EPIRUBICIN [Suspect]
     Active Substance: EPIRUBICIN
     Indication: Non-Hodgkin^s lymphoma stage III
     Route: 042
     Dates: start: 2011
  19. EPIRUBICIN [Suspect]
     Active Substance: EPIRUBICIN
     Dosage: ADJUVANT EC
     Route: 065
     Dates: start: 2011, end: 2011
  20. ASPARAGINASE [Suspect]
     Active Substance: ASPARAGINASE
     Indication: Diffuse large B-cell lymphoma stage II
     Dosage: 10000U QOD X 5;Q21D
     Route: 042
     Dates: start: 2011, end: 2011
  21. ASPARAGINASE [Suspect]
     Active Substance: ASPARAGINASE
     Indication: Lymphocytic leukaemia
  22. SALINE [Concomitant]
     Active Substance: SODIUM CHLORIDE
     Indication: Central nervous system leukaemia
     Route: 065
     Dates: start: 2011
  23. SALINE [Concomitant]
     Active Substance: SODIUM CHLORIDE
     Indication: Prophylaxis

REACTIONS (4)
  - Myelosuppression [Unknown]
  - Fatigue [Unknown]
  - Asthenia [Unknown]
  - Decreased appetite [Unknown]

NARRATIVE: CASE EVENT DATE: 20110101
